FAERS Safety Report 18667309 (Version 1)
Quarter: 2020Q4

REPORT INFORMATION
  Report Type: Spontaneous
  Country: CN (occurrence: CN)
  Receive Date: 20201228
  Receipt Date: 20201228
  Transmission Date: 20210114
  Serious: Yes (Hospitalization)
  Sender: FDA-Public Use
  Company Number: CN-ROCHE-2735914

PATIENT
  Age: 59 Year
  Sex: Female
  Weight: 57 kg

DRUGS (4)
  1. TECENTRIQ [Suspect]
     Active Substance: ATEZOLIZUMAB
     Indication: BREAST CANCER
     Route: 041
     Dates: start: 20201202, end: 20201202
  2. SODIUM CHLORIDE. [Concomitant]
     Active Substance: SODIUM CHLORIDE
     Dosage: SOLVENT
     Route: 041
     Dates: start: 20201203, end: 20201203
  3. ERIBULIN MESYLATE [Suspect]
     Active Substance: ERIBULIN MESYLATE
     Indication: BREAST CANCER
     Route: 041
     Dates: start: 20201203, end: 20201203
  4. SODIUM CHLORIDE. [Concomitant]
     Active Substance: SODIUM CHLORIDE
     Dosage: SOLVENT
     Route: 041
     Dates: start: 20201202, end: 20201202

REACTIONS (8)
  - Intentional product use issue [Unknown]
  - Pyrexia [Recovering/Resolving]
  - Off label use [Unknown]
  - Temperature intolerance [Recovering/Resolving]
  - Cough [Recovering/Resolving]
  - Mouth ulceration [Recovering/Resolving]
  - Myelosuppression [Recovering/Resolving]
  - Chills [Recovering/Resolving]

NARRATIVE: CASE EVENT DATE: 20201210
